FAERS Safety Report 21501821 (Version 5)
Quarter: 2023Q2

REPORT INFORMATION
  Report Type: Other
  Country: DE (occurrence: None)
  Receive Date: 20221025
  Receipt Date: 20230626
  Transmission Date: 20230722
  Serious: Yes (Hospitalization)
  Sender: FDA-Public Use
  Company Number: DE-ROCHE-2211199

PATIENT
  Age: 54 Year
  Sex: Female
  Weight: 63 kg

DRUGS (14)
  1. OCREVUS [Suspect]
     Active Substance: OCRELIZUMAB
     Indication: Progressive relapsing multiple sclerosis
     Dosage: 600MG 182 DAYS
     Route: 042
     Dates: start: 20181015
  2. OCREVUS [Suspect]
     Active Substance: OCRELIZUMAB
     Indication: Secondary progressive multiple sclerosis
     Route: 042
     Dates: start: 20181029
  3. OCREVUS [Suspect]
     Active Substance: OCRELIZUMAB
     Route: 042
     Dates: start: 20190417
  4. OCREVUS [Suspect]
     Active Substance: OCRELIZUMAB
     Dosage: NEXT DOSE ON 16/MAR/2020
     Route: 042
     Dates: start: 20190930
  5. OCREVUS [Suspect]
     Active Substance: OCRELIZUMAB
     Route: 042
     Dates: start: 20200916
  6. OCREVUS [Suspect]
     Active Substance: OCRELIZUMAB
     Route: 042
  7. COMIRNATY [Suspect]
     Active Substance: TOZINAMERAN
     Indication: Product used for unknown indication
     Dosage: 2ND VACCINE
     Route: 065
     Dates: start: 20211208
  8. COMIRNATY [Suspect]
     Active Substance: TOZINAMERAN
     Dosage: 3RD VACCINE
     Route: 065
     Dates: start: 20220223
  9. VIGANTOL [Concomitant]
  10. NITROUS OXIDE [Concomitant]
     Active Substance: NITROUS OXIDE
     Indication: Bladder disorder
  11. VESIKUR [Concomitant]
     Active Substance: SOLIFENACIN SUCCINATE
  12. CHOLECALCIFEROL [Concomitant]
     Active Substance: CHOLECALCIFEROL
  13. BETAFERON [Concomitant]
     Active Substance: INTERFERON BETA-1B
  14. COPAXONE [Concomitant]
     Active Substance: GLATIRAMER ACETATE

REACTIONS (19)
  - Rib fracture [Recovered/Resolved]
  - Fatigue [Recovered/Resolved]
  - Fall [Unknown]
  - Skin laceration [Recovered/Resolved]
  - Headache [Unknown]
  - Infusion related reaction [Recovered/Resolved]
  - Fatigue [Recovered/Resolved]
  - Tremor [Not Recovered/Not Resolved]
  - Nasopharyngitis [Recovered/Resolved]
  - Feeling hot [Recovered/Resolved]
  - Gait disturbance [Recovered/Resolved]
  - Muscular weakness [Not Recovered/Not Resolved]
  - Off label use [Unknown]
  - General physical health deterioration [Recovered/Resolved]
  - Cardiovascular disorder [Recovered/Resolved]
  - COVID-19 [Recovered/Resolved]
  - Leukopenia [Recovered/Resolved]
  - Cystitis noninfective [Recovered/Resolved]
  - Muscle spasms [Not Recovered/Not Resolved]

NARRATIVE: CASE EVENT DATE: 20181015
